FAERS Safety Report 21018674 (Version 1)
Quarter: 2022Q2

REPORT INFORMATION
  Report Type: Spontaneous
  Country: US (occurrence: US)
  Receive Date: 20220628
  Receipt Date: 20220628
  Transmission Date: 20220721
  Serious: Yes (Other)
  Sender: FDA-Public Use
  Company Number: US-PFIZER INC-PV202200009608

PATIENT
  Age: 36 Year
  Sex: Female
  Weight: 93 kg

DRUGS (1)
  1. PAXLOVID [Suspect]
     Active Substance: NIRMATRELVIR\RITONAVIR
     Indication: COVID-19 treatment
     Dosage: UNK
     Dates: start: 20220624, end: 20220626

REACTIONS (5)
  - Urticaria [Unknown]
  - Pruritus [Unknown]
  - Stomatitis [Unknown]
  - Vulvovaginal mycotic infection [Unknown]
  - Lip swelling [Unknown]

NARRATIVE: CASE EVENT DATE: 20220625
